FAERS Safety Report 17431625 (Version 1)
Quarter: 2020Q1

REPORT INFORMATION
  Report Type: Spontaneous
  Country: FR (occurrence: FR)
  Receive Date: 20200218
  Receipt Date: 20200218
  Transmission Date: 20200409
  Serious: Yes (Hospitalization)
  Sender: FDA-Public Use
  Company Number: FR-MYLANLABS-2020M1017732

PATIENT
  Age: 59 Year
  Sex: Female
  Weight: 90 kg

DRUGS (1)
  1. VANCOMYCIN [Suspect]
     Active Substance: VANCOMYCIN
     Indication: BACTERAEMIA
     Dosage: 2500 MG, Q24H
     Route: 042
     Dates: start: 20190503, end: 20190522

REACTIONS (3)
  - Pruritus [Recovered/Resolved]
  - Xeroderma [Recovered/Resolved]
  - Rash maculo-papular [Recovered/Resolved]

NARRATIVE: CASE EVENT DATE: 20190518
